FAERS Safety Report 5879785-3 (Version None)
Quarter: 2008Q3

REPORT INFORMATION
  Report Type: 
  Country: None (occurrence: None)
  Receive Date: 20080911
  Receipt Date: 20080911
  Transmission Date: 20090109
  Serious: Yes (Hospitalization)
  Sender: FDA-Public Use
  Company Number: None

PATIENT
  Age: 42 Year
  Sex: Male
  Weight: 108.8633 kg

DRUGS (2)
  1. TREXIMET [Suspect]
     Indication: ACCIDENT AT WORK
     Dosage: 1 PILL ONCE ORAL
     Route: 048
     Dates: start: 20080622
  2. TREXIMET [Suspect]
     Indication: HEAD INJURY
     Dosage: 1 PILL ONCE ORAL
     Route: 048
     Dates: start: 20080622

REACTIONS (1)
  - FEELING ABNORMAL [None]
